FAERS Safety Report 24891203 (Version 1)
Quarter: 2025Q1

REPORT INFORMATION
  Report Type: Report from Study
  Country: US (occurrence: US)
  Receive Date: 20250127
  Receipt Date: 20250127
  Transmission Date: 20250408
  Serious: Yes (Death, Hospitalization)
  Sender: PFIZER
  Company Number: US-PFIZER INC-PV202400112770

PATIENT
  Age: 85 Year
  Sex: Male

DRUGS (16)
  1. VYNDAQEL [Suspect]
     Active Substance: TAFAMIDIS MEGLUMINE
     Indication: Acquired ATTR amyloidosis
     Dosage: 80 MG, 1X/DAY (TAKE 4 CAPSULES BY MOUTH ONCE DAILY)
     Route: 048
     Dates: start: 20240806
  2. VYNDAQEL [Suspect]
     Active Substance: TAFAMIDIS MEGLUMINE
     Dosage: TAKE FOUR 20MG CAPS BY MOUTH ONCE DAILY
     Route: 048
     Dates: start: 20240806
  3. VYNDAQEL [Suspect]
     Active Substance: TAFAMIDIS MEGLUMINE
     Dosage: TAKE 80MG (4 CAPSULES) BY MOUTH ONCE DAILY
     Route: 048
     Dates: start: 20240806, end: 202412
  4. ASPIRIN [Concomitant]
     Active Substance: ASPIRIN
  5. ELIQUIS [Concomitant]
     Active Substance: APIXABAN
  6. BETAMETH [BETAMETHASONE SODIUM PHOSPHATE] [Concomitant]
  7. BUMETANIDE [Concomitant]
     Active Substance: BUMETANIDE
  8. FUROSEMIDE [Concomitant]
     Active Substance: FUROSEMIDE
  9. LEVOTHYROXINE [Concomitant]
     Active Substance: LEVOTHYROXINE
  10. METOLAZONE [Concomitant]
     Active Substance: METOLAZONE
  11. NYSTOP [Concomitant]
     Active Substance: NYSTATIN
  12. POTASSIUM CHLORIDE [Concomitant]
     Active Substance: POTASSIUM CHLORIDE
  13. SPIRONOLACTONE [Concomitant]
     Active Substance: SPIRONOLACTONE
  14. TAMSULOSIN [Concomitant]
     Active Substance: TAMSULOSIN
  15. MIDODRINE [Concomitant]
     Active Substance: MIDODRINE
  16. ASPIRIN [Concomitant]
     Active Substance: ASPIRIN

REACTIONS (9)
  - Death [Fatal]
  - Fluid retention [Not Recovered/Not Resolved]
  - Cystitis [Not Recovered/Not Resolved]
  - Fluid retention [Unknown]
  - Abdominal distension [Unknown]
  - Dizziness postural [Unknown]
  - Fatigue [Unknown]
  - Heart rate irregular [Unknown]
  - Dyspnoea [Unknown]

NARRATIVE: CASE EVENT DATE: 20240801
